FAERS Safety Report 6650323-0 (Version None)
Quarter: 2010Q1

REPORT INFORMATION
  Report Type: 
  Country: None (occurrence: None)
  Receive Date: 20100325
  Receipt Date: 20100319
  Transmission Date: 20100710
  Serious: Yes (Other)
  Sender: FDA-Public Use
  Company Number: US-ASTRAZENECA-2009UW19098

PATIENT
  Age: 30 Year
  Sex: Male
  Weight: 108.4 kg

DRUGS (18)
  1. SEROQUEL [Suspect]
     Indication: SCHIZOAFFECTIVE DISORDER
     Route: 048
     Dates: start: 19920101, end: 20080601
  2. SEROQUEL [Suspect]
     Indication: AFFECTIVE DISORDER
     Route: 048
     Dates: start: 19920101, end: 20080601
  3. SEROQUEL [Suspect]
     Route: 048
     Dates: start: 20070801
  4. SEROQUEL [Suspect]
     Route: 048
     Dates: start: 20070801
  5. ABILIFY [Concomitant]
  6. CLOZARIL [Concomitant]
  7. HALDOL [Concomitant]
     Route: 048
     Dates: start: 20050701
  8. HALDOL [Concomitant]
     Dosage: 5 MG NOON
     Route: 048
     Dates: start: 20050701
  9. RISPERDAL [Concomitant]
  10. THORAZINE [Concomitant]
  11. ZYPREXA [Concomitant]
  12. SYMBYAX [Concomitant]
  13. DILANTIN [Concomitant]
     Route: 048
     Dates: start: 20050701
  14. DEPAKOTE ER [Concomitant]
     Route: 048
     Dates: start: 20050701
  15. DEPAKOTE ER [Concomitant]
     Dosage: 500 MG 3 TABS Q EVENING
     Route: 048
     Dates: start: 20070801
  16. ATIVAN [Concomitant]
     Indication: AGITATION
     Route: 048
  17. ATIVAN [Concomitant]
     Dosage: 0.5 MG TID AND QID
     Route: 048
     Dates: start: 20070801
  18. AMBIEN [Concomitant]
     Route: 048
     Dates: start: 20070801

REACTIONS (8)
  - ACCIDENTAL OVERDOSE [None]
  - CONVULSION [None]
  - DIABETIC NEPHROPATHY [None]
  - DIABETIC NEUROPATHY [None]
  - OBESITY [None]
  - RENAL FAILURE [None]
  - RENAL FAILURE CHRONIC [None]
  - TYPE 2 DIABETES MELLITUS [None]
